FAERS Safety Report 6315620-7 (Version None)
Quarter: 2009Q3

REPORT INFORMATION
  Report Type: 
  Country: None (occurrence: None)
  Receive Date: 20090819
  Receipt Date: 20090807
  Transmission Date: 20100115
  Serious: Yes (Hospitalization)
  Sender: FDA-Public Use
  Company Number: FR-JNJCH-2009021645

PATIENT
  Sex: Male

DRUGS (3)
  1. ACTIFED [Suspect]
     Indication: NASOPHARYNGITIS
     Dosage: TEXT:1 TABLET
     Route: 048
     Dates: start: 20080913, end: 20080913
  2. ACTIFED [Suspect]
     Dosage: TEXT:1 TABLET
     Route: 048
  3. LIDOCAINE HYDROCHLORIDE/BENZALKONIUM CHLORIDE [Suspect]
     Indication: OROPHARYNGEAL PAIN
     Dosage: TEXT:2 PULVERISATIONS
     Route: 048
     Dates: start: 20080913, end: 20080913

REACTIONS (13)
  - ANAPHYLACTIC SHOCK [None]
  - BRONCHOSPASM [None]
  - CHILLS [None]
  - DIZZINESS [None]
  - DYSPHAGIA [None]
  - DYSPNOEA [None]
  - ERYTHEMA [None]
  - FACE OEDEMA [None]
  - HYPOTENSION [None]
  - NASAL CONGESTION [None]
  - OEDEMA PERIPHERAL [None]
  - PRURITUS [None]
  - URTICARIA [None]
